FAERS Safety Report 19640268 (Version 2)
Quarter: 2022Q1

REPORT INFORMATION
  Report Type: Spontaneous
  Country: US (occurrence: None)
  Receive Date: 20210730
  Receipt Date: 20220324
  Transmission Date: 20220424
  Serious: Yes (Death, Other)
  Sender: FDA-Public Use
  Company Number: 2021A647193

PATIENT
  Age: 58 Year
  Sex: Male
  Weight: 80.3 kg

DRUGS (51)
  1. PRILOSEC [Suspect]
     Active Substance: OMEPRAZOLE MAGNESIUM
     Indication: Gastrooesophageal reflux disease
     Route: 048
     Dates: start: 2000, end: 2016
  2. PRILOSEC [Suspect]
     Active Substance: OMEPRAZOLE MAGNESIUM
     Indication: Gastrooesophageal reflux disease
     Dosage: GENERIC
     Route: 065
     Dates: start: 2014, end: 2019
  3. PRILOSEC OTC [Suspect]
     Active Substance: OMEPRAZOLE MAGNESIUM
     Indication: Gastrooesophageal reflux disease
     Route: 048
     Dates: start: 2000, end: 2016
  4. PRILOSEC OTC [Suspect]
     Active Substance: OMEPRAZOLE MAGNESIUM
     Indication: Gastrooesophageal reflux disease
     Route: 048
     Dates: start: 2003, end: 2016
  5. DEXILANT [Suspect]
     Active Substance: DEXLANSOPRAZOLE
     Indication: Gastrooesophageal reflux disease
     Route: 065
     Dates: end: 2016
  6. PREVACID [Suspect]
     Active Substance: LANSOPRAZOLE
     Indication: Gastrooesophageal reflux disease
     Route: 065
     Dates: start: 2000, end: 2016
  7. PREVACID [Suspect]
     Active Substance: LANSOPRAZOLE
     Indication: Gastrooesophageal reflux disease
     Dosage: GENERIC
     Route: 065
     Dates: start: 2015, end: 2017
  8. PROTONIX [Suspect]
     Active Substance: PANTOPRAZOLE SODIUM
     Indication: Gastrooesophageal reflux disease
     Route: 065
     Dates: end: 2016
  9. TORADOL [Concomitant]
     Active Substance: KETOROLAC TROMETHAMINE
     Indication: Pain
     Dates: start: 201403
  10. TORADOL [Concomitant]
     Active Substance: KETOROLAC TROMETHAMINE
     Indication: Pain
     Dates: start: 201408
  11. TORADOL [Concomitant]
     Active Substance: KETOROLAC TROMETHAMINE
     Indication: Pain
     Dates: start: 201407
  12. TORADOL [Concomitant]
     Active Substance: KETOROLAC TROMETHAMINE
     Indication: Pain
     Dates: start: 201404
  13. TORADOL [Concomitant]
     Active Substance: KETOROLAC TROMETHAMINE
     Indication: Pain
     Dates: start: 201602
  14. TORADOL [Concomitant]
     Active Substance: KETOROLAC TROMETHAMINE
     Indication: Pain
     Dates: start: 201612
  15. TORADOL [Concomitant]
     Active Substance: KETOROLAC TROMETHAMINE
     Indication: Pain
     Dates: start: 201701
  16. TORADOL [Concomitant]
     Active Substance: KETOROLAC TROMETHAMINE
     Indication: Pain
     Dates: start: 201703
  17. TORADOL [Concomitant]
     Active Substance: KETOROLAC TROMETHAMINE
     Indication: Pain
     Dates: start: 201709
  18. TORADOL [Concomitant]
     Active Substance: KETOROLAC TROMETHAMINE
     Indication: Pain
     Dates: start: 201905
  19. ANCEF [Concomitant]
     Active Substance: CEFAZOLIN SODIUM
     Indication: Infection
     Dates: start: 201604
  20. PENICILLIN [Concomitant]
     Active Substance: PENICILLIN
     Indication: Infection
     Dates: start: 201807
  21. BENAZEPRIL [Concomitant]
     Active Substance: BENAZEPRIL HYDROCHLORIDE
     Indication: Blood pressure measurement
     Dates: start: 201609
  22. BENAZEPRIL [Concomitant]
     Active Substance: BENAZEPRIL HYDROCHLORIDE
     Indication: Blood pressure measurement
     Dates: start: 2019
  23. LISINOPRIL [Concomitant]
     Active Substance: LISINOPRIL
     Indication: Blood pressure measurement
     Dates: start: 2011
  24. LISINOPRIL [Concomitant]
     Active Substance: LISINOPRIL
     Indication: Blood pressure measurement
     Dates: start: 201612, end: 2019
  25. HYDROCHLOROTHIAZIDE [Concomitant]
     Active Substance: HYDROCHLOROTHIAZIDE
     Indication: Blood pressure measurement
     Dates: start: 201410
  26. ROSUVASTATIN [Concomitant]
     Active Substance: ROSUVASTATIN
     Indication: Cardiac disorder
     Dates: start: 201701
  27. ROSUVASTATIN [Concomitant]
     Active Substance: ROSUVASTATIN
     Indication: Cardiac disorder
     Dates: start: 201906
  28. ACETAMINOPHEN [Concomitant]
     Active Substance: ACETAMINOPHEN
     Indication: Pain
  29. IBUPROFEN [Concomitant]
     Active Substance: IBUPROFEN
     Indication: Pain
  30. FAMOTIDINE [Concomitant]
     Active Substance: FAMOTIDINE
     Dates: start: 201604
  31. RANITIDINE [Concomitant]
     Active Substance: RANITIDINE
  32. PEPCID [Concomitant]
     Active Substance: FAMOTIDINE
     Dates: start: 201502
  33. PEPCID [Concomitant]
     Active Substance: FAMOTIDINE
     Dates: start: 201604
  34. TUMS [Concomitant]
     Active Substance: CALCIUM CARBONATE
  35. METFORMIN [Concomitant]
     Active Substance: METFORMIN HYDROCHLORIDE
  36. AMLODIPINE BESYLATE [Concomitant]
     Active Substance: AMLODIPINE BESYLATE
  37. ACETAMINOPHEN\OXYCODONE HYDROCHLORIDE [Concomitant]
     Active Substance: ACETAMINOPHEN\OXYCODONE HYDROCHLORIDE
  38. CLINDAMYCIN [Concomitant]
     Active Substance: CLINDAMYCIN
  39. INFLUENZA VIRUS VACCINE [Concomitant]
     Active Substance: INFLUENZA VIRUS VACCINE
  40. ACETAMINOPHEN/COD [Concomitant]
  41. AMOXICILLIN [Concomitant]
     Active Substance: AMOXICILLIN
  42. ONDANSETRON [Concomitant]
     Active Substance: ONDANSETRON
  43. LANSOPRAZOLE [Concomitant]
     Active Substance: LANSOPRAZOLE
  44. VITAMIN D2 [Concomitant]
     Active Substance: ERGOCALCIFEROL
  45. CLARITHROMYCIN [Concomitant]
     Active Substance: CLARITHROMYCIN
  46. FENOFIBRIC ACID [Concomitant]
     Active Substance: FENOFIBRIC ACID
  47. METRONIDAZOLE [Concomitant]
     Active Substance: METRONIDAZOLE
  48. MOVIPREP [Concomitant]
     Active Substance: ASCORBIC ACID\POLYETHYLENE GLYCOL 3350\POTASSIUM CHLORIDE\SODIUM ASCORBATE\SODIUM CHLORIDE\SODIUM SU
  49. DEXTROSE [Concomitant]
     Active Substance: DEXTROSE
  50. SODIUM CHLORIDE [Concomitant]
     Active Substance: SODIUM CHLORIDE
  51. CAPECITABINE [Concomitant]
     Active Substance: CAPECITABINE

REACTIONS (4)
  - Adenocarcinoma gastric [Fatal]
  - Chronic kidney disease [Unknown]
  - Acute kidney injury [Unknown]
  - Renal failure [Unknown]

NARRATIVE: CASE EVENT DATE: 20160101
